FAERS Safety Report 9422485 (Version 1)
Quarter: 2013Q3

REPORT INFORMATION
  Report Type: Spontaneous
  Country: US (occurrence: US)
  Receive Date: 20130724
  Receipt Date: 20130724
  Transmission Date: 20140515
  Serious: Yes (Death, Other)
  Sender: FDA-Public Use
  Company Number: AUR-APL-2013-06077

PATIENT
  Age: 58 Year
  Sex: Male

DRUGS (7)
  1. MIRTAZAPINE [Suspect]
     Indication: PRODUCT USED FOR UNKNOWN INDICATION
  2. GABAPENTIN [Suspect]
     Indication: PRODUCT USED FOR UNKNOWN INDICATION
  3. TRAMADOL HCL [Suspect]
     Indication: PAIN
  4. HYDROXYZINE PAMOATE [Suspect]
     Indication: PRODUCT USED FOR UNKNOWN INDICATION
     Dosage: 9 (25 MG) TABLETS WERE TAKEN OVER 6 DAYS,UNKNOWN
  5. DULOXETINE [Suspect]
     Indication: PRODUCT USED FOR UNKNOWN INDICATION
  6. TRIMETHOPRIM (TRIMETHOPRIM) [Concomitant]
  7. SULFAMETHOXAZOLE (SULFAMETHOXAZOLE) [Concomitant]

REACTIONS (4)
  - Incorrect dose administered [None]
  - Cardiomegaly [None]
  - Pulmonary congestion [None]
  - Hepatic steatosis [None]
